FAERS Safety Report 21972213 (Version 1)
Quarter: 2023Q1

REPORT INFORMATION
  Report Type: Spontaneous
  Country: US (occurrence: None)
  Receive Date: 20230207
  Receipt Date: 20230207
  Transmission Date: 20230418
  Serious: No
  Sender: FDA-Public Use
  Company Number: None

PATIENT
  Sex: Female

DRUGS (1)
  1. HUMIRA [Suspect]
     Active Substance: ADALIMUMAB
     Indication: Rheumatoid arthritis
     Dosage: FREQUENCY : EVERY OTHER WEEK;?
     Route: 058
     Dates: start: 202205

REACTIONS (11)
  - Drug ineffective [None]
  - Joint swelling [None]
  - Arthralgia [None]
  - Pruritus [None]
  - Urticaria [None]
  - Injection site swelling [None]
  - Injection site discolouration [None]
  - Injection site papule [None]
  - Injection site pruritus [None]
  - Rash erythematous [None]
  - Rash [None]
